FAERS Safety Report 9260460 (Version 1)
Quarter: 2013Q2

REPORT INFORMATION
  Report Type: Spontaneous
  Country: US (occurrence: US)
  Receive Date: 20130429
  Receipt Date: 20130429
  Transmission Date: 20140414
  Serious: Yes (Hospitalization)
  Sender: FDA-Public Use
  Company Number: US-BAYER-2013-052083

PATIENT
  Age: 18 Year
  Sex: Female
  Weight: 59.96 kg

DRUGS (6)
  1. YAZ [Suspect]
     Indication: ACNE
  2. YASMIN [Suspect]
  3. CEFUROXIME [Concomitant]
     Dosage: 500 MG, UNK
  4. HYDROCODONE W/APAP [Concomitant]
     Dosage: 7.5/ 500MG
  5. AMOXICILLIN [Concomitant]
     Dosage: 250 MG, UNK
  6. PERCOCET [Concomitant]

REACTIONS (1)
  - Pulmonary embolism [None]
